FAERS Safety Report 4709803-7 (Version None)
Quarter: 2005Q3

REPORT INFORMATION
  Report Type: 
  Country: None (occurrence: None)
  Receive Date: 20050708
  Receipt Date: 20050602
  Transmission Date: 20060218
  Serious: Yes (Disabling)
  Sender: FDA-Public Use
  Company Number: US-MERCK-0506USA00627

PATIENT
  Age: 54 Year
  Sex: Female

DRUGS (6)
  1. EMEND [Suspect]
     Indication: PROPHYLAXIS OF NAUSEA AND VOMITING
     Route: 048
     Dates: start: 20050524, end: 20050524
  2. EMEND [Suspect]
     Route: 048
     Dates: start: 20050523, end: 20050523
  3. REGLAN [Suspect]
     Route: 065
     Dates: start: 20050501
  4. ATACAND [Concomitant]
     Route: 065
  5. DECADRON [Concomitant]
     Route: 048
  6. ANTINEOPLASTIC (UNSPECIFIED) [Concomitant]
     Route: 065
     Dates: start: 20050523

REACTIONS (4)
  - EYE DISORDER [None]
  - FEELING ABNORMAL [None]
  - VISUAL DISTURBANCE [None]
  - VOMITING [None]
